FAERS Safety Report 23379412 (Version 1)
Quarter: 2024Q1

REPORT INFORMATION
  Report Type: Report from Study
  Country: US (occurrence: US)
  Receive Date: 20240108
  Receipt Date: 20240108
  Transmission Date: 20240410
  Serious: Yes (Hospitalization, Other)
  Sender: FDA-Public Use
  Company Number: US-OTSUKA PHARMACEUTICAL NETHERLANDS B.V.-AUR-004955

PATIENT
  Sex: Female

DRUGS (2)
  1. LUPKYNIS [Suspect]
     Active Substance: VOCLOSPORIN
     Indication: Product used for unknown indication
     Dosage: 23.7 MILLIGRAM, BID
     Route: 048
     Dates: start: 20220523
  2. BENLYSTA [Concomitant]
     Active Substance: BELIMUMAB
     Indication: Product used for unknown indication
     Dosage: UNK
     Dates: start: 20231110

REACTIONS (7)
  - Urine protein/creatinine ratio increased [Recovering/Resolving]
  - Systemic lupus erythematosus [Not Recovered/Not Resolved]
  - Urinary tract infection [Unknown]
  - Back pain [Unknown]
  - Oedema [Unknown]
  - Urine abnormality [Unknown]
  - Proteinuria [Not Recovered/Not Resolved]
